FAERS Safety Report 9788671 (Version 1)
Quarter: 2013Q4

REPORT INFORMATION
  Report Type: Spontaneous
  Country: FR (occurrence: FR)
  Receive Date: 20131230
  Receipt Date: 20131230
  Transmission Date: 20140711
  Serious: Yes (Hospitalization)
  Sender: FDA-Public Use
  Company Number: FR-JNJFOC-20131216515

PATIENT
  Age: 72 Year
  Sex: Female

DRUGS (7)
  1. RISPERDAL [Suspect]
     Indication: DEPRESSION
     Route: 048
  2. RISPERDAL CONSTA [Suspect]
     Indication: DEPRESSION
     Route: 030
  3. LEPTICUR [Suspect]
     Indication: DEPRESSION
     Route: 048
  4. ATARAX [Concomitant]
     Route: 048
     Dates: end: 20131117
  5. THERALENE [Concomitant]
     Indication: INSOMNIA
     Dosage: 4 % SOLUTION.
     Route: 048
     Dates: end: 20131117
  6. SERESTA [Concomitant]
     Dosage: DOSE REDUCED
     Route: 048
  7. SERESTA [Concomitant]
     Route: 048

REACTIONS (4)
  - Pulmonary embolism [Unknown]
  - Fall [Unknown]
  - Decreased activity [Recovering/Resolving]
  - Deep vein thrombosis [Unknown]
